FAERS Safety Report 8935047 (Version 1)
Quarter: 2012Q4

REPORT INFORMATION
  Report Type: 
  Country: None (occurrence: FR)
  Receive Date: 20121129
  Receipt Date: 20121129
  Transmission Date: 20130627
  Serious: Yes (Hospitalization)
  Sender: FDA-Public Use
  Company Number: FR-BAXTER-2012BAX024896

PATIENT
  Age: 26 Year
  Sex: Female

DRUGS (3)
  1. SUPRANE, LIQUIDE POUR INHALATION PAR VAPEUR [Suspect]
     Indication: GENERAL ANESTHESIA
     Route: 055
     Dates: start: 20070319, end: 20070319
  2. ULTIVA [Suspect]
     Indication: INDUCTION OF ANESTHESIA
     Route: 042
     Dates: start: 20120319, end: 20120319
  3. DIPRIVAN [Suspect]
     Indication: INDUCTION OF ANESTHESIA
     Route: 065
     Dates: start: 20120319, end: 20120319

REACTIONS (5)
  - Tachycardia [Recovered/Resolved]
  - Hypotension [Recovered/Resolved]
  - Anaphylactic shock [Recovered/Resolved]
  - End-tidal CO2 decreased [Unknown]
  - Unwanted awareness during anaesthesia [Unknown]
